FAERS Safety Report 17427806 (Version 3)
Quarter: 2021Q4

REPORT INFORMATION
  Report Type: Spontaneous
  Country: IT (occurrence: IT)
  Receive Date: 20200218
  Receipt Date: 20211108
  Transmission Date: 20220303
  Serious: Yes (Other)
  Sender: FDA-Public Use
  Company Number: None

PATIENT
  Age: 46 Year
  Sex: Female

DRUGS (8)
  1. DASATINIB [Suspect]
     Active Substance: DASATINIB
     Indication: Acute lymphocytic leukaemia
     Dosage: UNK
     Route: 065
  2. PREDNISONE [Suspect]
     Active Substance: PREDNISONE
     Indication: Acute lymphocytic leukaemia
     Dosage: UNK
     Route: 065
  3. VORICONAZOLE [Interacting]
     Active Substance: VORICONAZOLE
     Indication: Bronchopulmonary aspergillosis
     Dosage: 100 MILLIGRAM
     Route: 065
     Dates: start: 201612
  4. ICLUSIG [Interacting]
     Active Substance: PONATINIB
     Indication: Acute lymphocytic leukaemia
     Dosage: 15 MG, QD
     Route: 065
     Dates: start: 201612
  5. ICLUSIG [Interacting]
     Active Substance: PONATINIB
     Dosage: 45 MG QD
     Route: 065
     Dates: start: 201612
  6. ICLUSIG [Interacting]
     Active Substance: PONATINIB
     Dosage: 30 MG, QD
     Route: 065
  7. ICLUSIG [Interacting]
     Active Substance: PONATINIB
     Dosage: 60 MG, QD
     Route: 065
     Dates: start: 201612
  8. THYROXINE [Concomitant]
     Active Substance: LEVOTHYROXINE
     Indication: Hormone replacement therapy
     Dosage: UNK
     Route: 065

REACTIONS (8)
  - Neuropathy peripheral [Unknown]
  - Atrial fibrillation [Unknown]
  - Drug level increased [Unknown]
  - Drug interaction [Unknown]
  - Hallucination [Unknown]
  - Insomnia [Unknown]
  - Psychotic disorder [Unknown]
  - Remission not achieved [Unknown]

NARRATIVE: CASE EVENT DATE: 20171201
